FAERS Safety Report 8378267-7 (Version None)
Quarter: 2012Q2

REPORT INFORMATION
  Report Type: 
  Country: None (occurrence: None)
  Receive Date: 20120522
  Receipt Date: 20120124
  Transmission Date: 20120825
  Serious: Yes (Disabling)
  Sender: FDA-Public Use
  Company Number: GB-MYLANLABS-2012S1002545

PATIENT
  Age: 30 Month
  Sex: Male

DRUGS (3)
  1. HEPARIN [Concomitant]
  2. ANESTHETICS, GENERAL [Concomitant]
  3. MELPHALAN [Suspect]
     Indication: RETINOBLASTOMA
     Route: 013

REACTIONS (1)
  - EYE EXCISION [None]
